FAERS Safety Report 6205878-7 (Version None)
Quarter: 2009Q2

REPORT INFORMATION
  Report Type: 
  Country: None (occurrence: None)
  Receive Date: 20090527
  Receipt Date: 20090511
  Transmission Date: 20091009
  Serious: No
  Sender: FDA-Public Use
  Company Number: US-ABBOTT-09P-163-0572535-00

PATIENT
  Sex: Female

DRUGS (6)
  1. SIMCOR [Suspect]
     Indication: BLOOD CHOLESTEROL ABNORMAL
     Dosage: 500/20MG
     Dates: start: 20090420
  2. ASPIRIN [Concomitant]
     Indication: DRUG USE FOR UNKNOWN INDICATION
     Route: 048
  3. KAPIDEX [Concomitant]
     Indication: DRUG USE FOR UNKNOWN INDICATION
     Route: 048
  4. AMLODIPINE [Concomitant]
     Indication: DRUG USE FOR UNKNOWN INDICATION
     Route: 048
  5. LISINOPRIL AND HYDROCHLOROTHIAZIDE [Concomitant]
     Indication: DRUG USE FOR UNKNOWN INDICATION
     Dosage: 20/12.5MG
     Route: 048
  6. SELEDENE GENERIC [Concomitant]
     Indication: DRUG USE FOR UNKNOWN INDICATION
     Route: 048

REACTIONS (4)
  - FEELING HOT [None]
  - FLUSHING [None]
  - HAEMORRHAGIC DISORDER [None]
  - HYPERHIDROSIS [None]
